FAERS Safety Report 6258083-2 (Version None)
Quarter: 2009Q3

REPORT INFORMATION
  Report Type: 
  Country: None (occurrence: None)
  Receive Date: 20090707
  Receipt Date: 20090626
  Transmission Date: 20100115
  Serious: Yes (Other)
  Sender: FDA-Public Use
  Company Number: PHHY2009JP05062

PATIENT
  Sex: Female

DRUGS (13)
  1. COMTAN [Suspect]
     Indication: DRUG EFFECT DECREASED
     Dosage: 600 MG/DAY
     Route: 048
     Dates: start: 20070606, end: 20070717
  2. COMTAN [Suspect]
     Indication: PARKINSON'S DISEASE
     Dosage: 500 MG/DAY
     Route: 048
     Dates: start: 20070718, end: 20070731
  3. COMTAN [Suspect]
     Dosage: 400 MG/DAY
     Route: 048
     Dates: start: 20070801
  4. MENESIT [Suspect]
     Indication: PARKINSON'S DISEASE
     Dosage: 600 MG/ DAY
     Route: 048
     Dates: start: 20040902, end: 20070731
  5. MENESIT [Suspect]
     Dosage: 400 MG/DAY
     Route: 048
     Dates: start: 20070801
  6. REQUIP [Concomitant]
     Dosage: 9 MG
     Route: 048
  7. SELEGILINE HCL [Concomitant]
     Dosage: 5 MG, UNK
     Route: 048
  8. CARBIDOPA AND LEVODOPA [Concomitant]
  9. SELEGILINE [Concomitant]
  10. AMANTADINE HCL [Concomitant]
  11. ROPINIROLE [Concomitant]
  12. DROXIDOPA [Concomitant]
  13. CABASER [Concomitant]
     Dosage: 3 MG
     Route: 048

REACTIONS (4)
  - CHROMATURIA [None]
  - DOPAMINE DYSREGULATION SYNDROME [None]
  - LOGORRHOEA [None]
  - PORIOMANIA [None]
